FAERS Safety Report 24656498 (Version 3)
Quarter: 2025Q1

REPORT INFORMATION
  Report Type: Spontaneous
  Country: JP (occurrence: JP)
  Receive Date: 20241124
  Receipt Date: 20250109
  Transmission Date: 20250409
  Serious: Yes (Death, Hospitalization, Other)
  Sender: NOVARTIS
  Company Number: JP-002147023-NVSJ2024JP013786

PATIENT
  Age: 80 Year
  Sex: Male
  Weight: 60 kg

DRUGS (12)
  1. LUTATHERA [Suspect]
     Active Substance: LUTETIUM OXODOTREOTIDE LU-177
     Indication: Carcinoid tumour
     Route: 042
     Dates: start: 20240208
  2. LUTATHERA [Suspect]
     Active Substance: LUTETIUM OXODOTREOTIDE LU-177
     Route: 042
     Dates: start: 20240404
  3. LUTATHERA [Suspect]
     Active Substance: LUTETIUM OXODOTREOTIDE LU-177
     Route: 042
     Dates: start: 20240606
  4. LUTATHERA [Suspect]
     Active Substance: LUTETIUM OXODOTREOTIDE LU-177
     Route: 042
     Dates: start: 20240808, end: 20240808
  5. ARGININE\LYSINE [Suspect]
     Active Substance: ARGININE\LYSINE
     Indication: Carcinoid tumour
     Route: 041
     Dates: start: 20240208
  6. ARGININE\LYSINE [Suspect]
     Active Substance: ARGININE\LYSINE
     Route: 041
     Dates: start: 20240404
  7. ARGININE\LYSINE [Suspect]
     Active Substance: ARGININE\LYSINE
     Route: 041
     Dates: start: 20240606
  8. ARGININE\LYSINE [Suspect]
     Active Substance: ARGININE\LYSINE
     Route: 041
     Dates: start: 20240808, end: 20240808
  9. ALLOPURINOL [Concomitant]
     Active Substance: ALLOPURINOL
     Indication: Hyperuricaemia
     Dosage: 100 MG, QD
     Route: 048
     Dates: end: 20241004
  10. SILODOSIN [Concomitant]
     Active Substance: SILODOSIN
     Indication: Benign prostatic hyperplasia
     Dosage: 4 MG, BID
     Route: 048
     Dates: start: 20240120, end: 20241004
  11. ELIQUIS [Concomitant]
     Active Substance: APIXABAN
     Indication: Atrial fibrillation
     Dosage: 2.5 MG, BID
     Route: 048
     Dates: start: 20240125, end: 20241004
  12. AMLODIPINE [Concomitant]
     Active Substance: AMLODIPINE BESYLATE
     Indication: Hypertension
     Dosage: 5 MG, QD
     Route: 048

REACTIONS (11)
  - Acute promyelocytic leukaemia [Fatal]
  - Second primary malignancy [Fatal]
  - Carcinoid tumour [Fatal]
  - Malignant neoplasm progression [Fatal]
  - Cardiac tamponade [Fatal]
  - Pericardial effusion [Fatal]
  - Pleural effusion [Fatal]
  - General physical health deterioration [Fatal]
  - Circulatory collapse [Fatal]
  - Pancytopenia [Unknown]
  - Therapeutic product effect incomplete [Unknown]

NARRATIVE: CASE EVENT DATE: 20241007
